FAERS Safety Report 10234541 (Version 3)
Quarter: 2014Q4

REPORT INFORMATION
  Report Type: Spontaneous
  Country: DE (occurrence: DE)
  Receive Date: 20140613
  Receipt Date: 20141216
  Transmission Date: 20150528
  Serious: Yes (Other)
  Sender: FDA-Public Use
  Company Number: DE-AMGEN-DEUSP2014043655

PATIENT
  Age: 43 Year
  Sex: Female
  Weight: 64 kg

DRUGS (10)
  1. EPIRUBICIN [Concomitant]
     Active Substance: EPIRUBICIN
     Indication: BREAST CANCER
     Dosage: 1200 MG, 14
     Route: 042
     Dates: start: 20140306
  2. CYCLOPHOSPHAM [Concomitant]
     Indication: BREAST CANCER
     Dosage: 2010 MG, Q21
     Route: 042
     Dates: start: 20140306
  3. NEUROTRAT S [Concomitant]
     Dosage: 1/TBL, UNK
     Dates: start: 20140224
  4. BELOC-ZOC COMP [Concomitant]
     Active Substance: HYDROCHLOROTHIAZIDE\METOPROLOL SUCCINATE
     Dosage: 47,5 MG, UNK
     Dates: start: 20140403
  5. NEULASTA [Suspect]
     Active Substance: PEGFILGRASTIM
     Indication: PRODUCT USED FOR UNKNOWN INDICATION
     Dosage: 6 MG D1, Q2WK
     Route: 058
     Dates: start: 20140307, end: 20140523
  6. DOCETAXEL. [Suspect]
     Active Substance: DOCETAXEL
     Indication: BREAST CANCER
     Dosage: 140 MG, Q14
     Route: 042
     Dates: start: 20140508, end: 20140605
  7. CIPROFLOXACIN. [Concomitant]
     Active Substance: CIPROFLOXACIN
     Dosage: D5-12, UNK
     Dates: start: 20140310, end: 20140414
  8. TRASTUZUMAB [Concomitant]
     Active Substance: TRASTUZUMAB
     Indication: BREAST CANCER
     Dosage: 260 MG, Q14
     Route: 042
     Dates: start: 20140508, end: 20140605
  9. TRASTUZUMAB [Concomitant]
     Active Substance: TRASTUZUMAB
     Dosage: UNK
     Dates: start: 20140616
  10. METOPROLOL [Concomitant]
     Active Substance: METOPROLOL
     Dosage: UNK, PER USE
     Dates: start: 20140306

REACTIONS (3)
  - Cough [Not Recovered/Not Resolved]
  - Alveolitis [Recovering/Resolving]
  - Atypical pneumonia [Not Recovered/Not Resolved]

NARRATIVE: CASE EVENT DATE: 20140602
